FAERS Safety Report 8340514-5 (Version None)
Quarter: 2012Q2

REPORT INFORMATION
  Report Type: 
  Country: None (occurrence: None)
  Receive Date: 20120507
  Receipt Date: 20090810
  Transmission Date: 20120825
  Serious: Yes (Other)
  Sender: FDA-Public Use
  Company Number: US-TEVA-2009009473

PATIENT
  Age: 76 Year
  Sex: Male

DRUGS (2)
  1. RITUXAN [Concomitant]
  2. TREANDA [Suspect]
     Route: 041

REACTIONS (4)
  - PNEUMONIA [None]
  - NASOPHARYNGITIS [None]
  - HYPERSENSITIVITY [None]
  - DIARRHOEA [None]
